FAERS Safety Report 13350866 (Version 1)
Quarter: 2017Q1

REPORT INFORMATION
  Report Type: Spontaneous
  Country: DK (occurrence: DK)
  Receive Date: 20170320
  Receipt Date: 20170320
  Transmission Date: 20170429
  Serious: Yes (Death)
  Sender: FDA-Public Use
  Company Number: DK-TEVA-748772ROM

PATIENT
  Age: 84 Year
  Sex: Male
  Weight: 98 kg

DRUGS (11)
  1. ASPIRIN. [Suspect]
     Active Substance: ASPIRIN
     Route: 048
  2. OXAZEPAM. [Suspect]
     Active Substance: OXAZEPAM
     Route: 048
  3. IVABRADINE [Suspect]
     Active Substance: IVABRADINE
     Route: 048
  4. METOPROLOL. [Suspect]
     Active Substance: METOPROLOL
     Route: 048
  5. SIMVASTATIN. [Suspect]
     Active Substance: SIMVASTATIN
     Route: 048
  6. TRANDOLAPRIL. [Suspect]
     Active Substance: TRANDOLAPRIL
     Route: 048
  7. LIDOCAINE. [Concomitant]
     Active Substance: LIDOCAINE
     Route: 065
  8. MIRTAZAPINE. [Suspect]
     Active Substance: MIRTAZAPINE
     Route: 048
  9. NIFEDIPINE. [Suspect]
     Active Substance: NIFEDIPINE
     Route: 048
  10. PARACETAMOL [Suspect]
     Active Substance: ACETAMINOPHEN
     Route: 048
  11. DIAZEPAM. [Concomitant]
     Active Substance: DIAZEPAM
     Route: 065

REACTIONS (7)
  - Oesophageal haemorrhage [Fatal]
  - Hypotension [Fatal]
  - Pneumonia aspiration [Fatal]
  - Intentional overdose [Fatal]
  - Oesophageal obstruction [Fatal]
  - Completed suicide [Fatal]
  - Bezoar [Fatal]
